FAERS Safety Report 5213456-1 (Version None)
Quarter: 2007Q1

REPORT INFORMATION
  Report Type: 
  Country: None (occurrence: None)
  Receive Date: 20070119
  Receipt Date: 20070116
  Transmission Date: 20070707
  Serious: Yes (Death, Hospitalization)
  Sender: FDA-Public Use
  Company Number: CA-BRISTOL-MYERS SQUIBB COMPANY-13644331

PATIENT
  Age: 57 Year
  Sex: Male

DRUGS (5)
  1. CYCLOPHOSPHAMIDE [Suspect]
     Indication: LYMPHOMA
  2. DOXORUBICIN HCL [Suspect]
     Indication: LYMPHOMA
  3. RITUXIMAB [Suspect]
     Indication: LYMPHOMA
  4. LAMIVUDINE [Concomitant]
     Indication: HEPATITIS B
  5. TENOFOVIR [Concomitant]

REACTIONS (3)
  - ENCEPHALOPATHY [None]
  - HEPATITIS B [None]
  - RESPIRATORY FAILURE [None]
